FAERS Safety Report 9911434 (Version 1)
Quarter: 2014Q1

REPORT INFORMATION
  Report Type: Spontaneous
  Country: FI (occurrence: FI)
  Receive Date: 20140219
  Receipt Date: 20140219
  Transmission Date: 20141002
  Serious: Yes (Death, Other)
  Sender: FDA-Public Use
  Company Number: PHHY2014FI019982

PATIENT
  Age: 77 Year
  Sex: Female

DRUGS (6)
  1. PARACETAMOL [Suspect]
     Route: 042
  2. OXAZEPAM [Suspect]
  3. CHLORDIAZEPOXIDE [Suspect]
  4. MORPHINE [Suspect]
  5. CARBAMAZEPINE [Suspect]
  6. DESMETHYLDIAZEPAM [Suspect]

REACTIONS (5)
  - Toxicity to various agents [Fatal]
  - Loss of consciousness [Recovering/Resolving]
  - Dyspnoea [Recovering/Resolving]
  - Convulsion [Unknown]
  - Unresponsive to stimuli [Recovering/Resolving]
